FAERS Safety Report 24343278 (Version 1)
Quarter: 2024Q3

REPORT INFORMATION
  Report Type: Spontaneous
  Country: US (occurrence: None)
  Receive Date: 20240919
  Receipt Date: 20240919
  Transmission Date: 20241017
  Serious: Yes (Hospitalization)
  Sender: Public
  Company Number: None

PATIENT
  Age: 32 Year
  Sex: Female
  Weight: 100 kg

DRUGS (6)
  1. ARTESUNATE\MEFLOQUINE [Suspect]
     Active Substance: ARTESUNATE\MEFLOQUINE
     Indication: Malaria
     Dates: start: 20240916, end: 20240917
  2. acetaminophen (TYLENOL) suppository 650 mg [Concomitant]
     Dates: start: 20240716, end: 20240721
  3. levETIRAcetam (KEPPRA) IV 2,000 mg [Concomitant]
     Dates: start: 20240716
  4. piperacillin-tazobactam (ZOSYN) 3.375 g [Concomitant]
     Dates: start: 20240717, end: 20240718
  5. vancomycin HCl (VANCOCIN) [Concomitant]
     Dates: start: 20240717, end: 20240718
  6. ARTEMETHER\LUMEFANTRINE [Suspect]
     Active Substance: ARTEMETHER\LUMEFANTRINE
     Dates: start: 20240916, end: 20240917

REACTIONS (1)
  - Haemolytic anaemia [None]

NARRATIVE: CASE EVENT DATE: 20240728
